FAERS Safety Report 12411420 (Version 1)
Quarter: 2016Q2

REPORT INFORMATION
  Report Type: Spontaneous
  Country: US (occurrence: None)
  Receive Date: 20160526
  Receipt Date: 20160526
  Transmission Date: 20160815
  Serious: No
  Sender: FDA-Public Use
  Company Number: None

PATIENT
  Age: 68 Year
  Sex: Female
  Weight: 81.65 kg

DRUGS (4)
  1. METFORMIN [Concomitant]
     Active Substance: METFORMIN HYDROCHLORIDE
  2. METAPHONAL [Concomitant]
  3. LEVOTHROID [Concomitant]
     Active Substance: LEVOTHYROXINE SODIUM
  4. ZETIA [Suspect]
     Active Substance: EZETIMIBE
     Route: 048
     Dates: start: 20160407

REACTIONS (1)
  - Joint swelling [None]

NARRATIVE: CASE EVENT DATE: 201605
